FAERS Safety Report 7370246-1 (Version None)
Quarter: 2011Q1

REPORT INFORMATION
  Report Type: 
  Country: None (occurrence: None)
  Receive Date: 20110323
  Receipt Date: 20110316
  Transmission Date: 20110831
  Serious: Yes (Death, Other)
  Sender: FDA-Public Use
  Company Number: PHHY2010JP82363

PATIENT
  Sex: Male
  Weight: 52 kg

DRUGS (7)
  1. EXJADE [Suspect]
     Indication: ACUTE MYELOID LEUKAEMIA
     Dosage: 500 MG, QD
     Route: 048
     Dates: start: 20090702, end: 20090731
  2. DESFERAL [Concomitant]
     Indication: CHRONIC MYELOID LEUKAEMIA
     Dosage: 500 MG, UNK
     Route: 030
     Dates: start: 20090509, end: 20090701
  3. NEORAL [Concomitant]
     Dosage: 20 MG, UNK
     Route: 048
     Dates: end: 20090804
  4. NEORAL [Concomitant]
     Dosage: 40 MG, UNK
     Route: 048
  5. NEORAL [Concomitant]
     Dosage: 30 MG, UNK
     Route: 048
  6. NEORAL [Concomitant]
     Dosage: 50 MG, UNK
     Route: 048
     Dates: start: 20090702
  7. EXJADE [Suspect]
     Dosage: 625 MG, QD
     Route: 048
     Dates: start: 20090801, end: 20090903

REACTIONS (7)
  - NEOPLASM MALIGNANT [None]
  - CYTOMEGALOVIRUS ENTEROCOLITIS [None]
  - RESPIRATORY DISORDER [None]
  - DIARRHOEA [None]
  - GAMMA-GLUTAMYLTRANSFERASE INCREASED [None]
  - LUNG INFILTRATION [None]
  - BLOOD ALKALINE PHOSPHATASE INCREASED [None]
